FAERS Safety Report 12277125 (Version 1)
Quarter: 2016Q2

REPORT INFORMATION
  Report Type: Spontaneous
  Country: US (occurrence: US)
  Receive Date: 20160418
  Receipt Date: 20160418
  Transmission Date: 20160815
  Serious: No
  Sender: FDA-Public Use
  Company Number: US-MYLANLABS-2015M1028883

PATIENT
  Sex: Female

DRUGS (2)
  1. DILTIAZEM HYDROCHLORIDE EXTENDED-RELEASE CAPSULES, USP [Suspect]
     Active Substance: DILTIAZEM HYDROCHLORIDE
     Indication: ATRIAL TACHYCARDIA
     Dosage: 180 MG, AM
     Route: 048
  2. DILTIAZEM HYDROCHLORIDE EXTENDED-RELEASE CAPSULES, USP [Suspect]
     Active Substance: DILTIAZEM HYDROCHLORIDE
     Indication: OFF LABEL USE

REACTIONS (3)
  - Palpitations [Not Recovered/Not Resolved]
  - Medication residue present [Not Recovered/Not Resolved]
  - Drug effect decreased [Not Recovered/Not Resolved]

NARRATIVE: CASE EVENT DATE: 2015
